FAERS Safety Report 24360882 (Version 5)
Quarter: 2024Q4

REPORT INFORMATION
  Report Type: Spontaneous
  Country: US (occurrence: US)
  Receive Date: 20240925
  Receipt Date: 20241219
  Transmission Date: 20250115
  Serious: No
  Sender: BIOVITRUM
  Company Number: US-BIOVITRUM-2024-US-012380

PATIENT
  Age: 59 Year
  Sex: Female

DRUGS (1)
  1. VONJO [Suspect]
     Active Substance: PACRITINIB
     Indication: Myelofibrosis
     Dosage: TWICE DAILY (BID)
     Route: 048
     Dates: start: 20240907

REACTIONS (14)
  - Platelet count abnormal [Unknown]
  - Dizziness [Unknown]
  - Off label use [Not Recovered/Not Resolved]
  - Arthralgia [Unknown]
  - Asthenia [Unknown]
  - Joint swelling [Unknown]
  - Oedema [Unknown]
  - Pain [Unknown]
  - Frustration tolerance decreased [Unknown]
  - Swelling [Unknown]
  - Vertigo [Unknown]
  - Headache [Unknown]
  - Nausea [Unknown]
  - Sinusitis [Unknown]

NARRATIVE: CASE EVENT DATE: 20240907
